FAERS Safety Report 7153350-2 (Version None)
Quarter: 2010Q4

REPORT INFORMATION
  Report Type: 
  Country: None (occurrence: None)
  Receive Date: 20101213
  Receipt Date: 20101209
  Transmission Date: 20110411
  Serious: Yes (Other)
  Sender: FDA-Public Use
  Company Number: GB-ROCHE-747254

PATIENT
  Sex: Female

DRUGS (1)
  1. ROACTEMRA [Suspect]
     Route: 042

REACTIONS (1)
  - PERIPHERAL ISCHAEMIA [None]
